FAERS Safety Report 8990359 (Version 3)
Quarter: 2013Q2

REPORT INFORMATION
  Report Type: Report from Study
  Country: US (occurrence: US)
  Receive Date: 20121228
  Receipt Date: 20130530
  Transmission Date: 20140414
  Serious: Yes (Hospitalization, Other)
  Sender: FDA-Public Use
  Company Number: US-US-EMD SERONO, INC.-7184003

PATIENT
  Age: 56 Year
  Sex: Female
  Weight: 116 kg

DRUGS (6)
  1. REBIF [Suspect]
     Indication: MULTIPLE SCLEROSIS
     Route: 058
     Dates: start: 20030410, end: 20121123
  2. REBIF [Suspect]
     Route: 058
     Dates: start: 20121215
  3. BACLOFEN [Concomitant]
     Indication: MULTIPLE SCLEROSIS
  4. GABAPENTIN [Concomitant]
     Indication: MULTIPLE SCLEROSIS
  5. AMLODIPINE [Concomitant]
     Indication: HYPERTENSION
  6. CRESTOR [Concomitant]
     Indication: BLOOD CHOLESTEROL INCREASED

REACTIONS (7)
  - Hip fracture [Recovering/Resolving]
  - Thrombosis [Unknown]
  - Osteonecrosis [Unknown]
  - Injection site scar [Unknown]
  - Joint stiffness [Unknown]
  - Depression [Recovering/Resolving]
  - Influenza like illness [Unknown]
